FAERS Safety Report 8209883-0 (Version None)
Quarter: 2012Q1

REPORT INFORMATION
  Report Type: 
  Country: None (occurrence: None)
  Receive Date: 20120314
  Receipt Date: 20120301
  Transmission Date: 20120608
  Serious: Yes (Hospitalization)
  Sender: FDA-Public Use
  Company Number: DE-ROCHE-1010769

PATIENT
  Age: 65 Year
  Sex: Female
  Weight: 51.5 kg

DRUGS (5)
  1. VEMURAFENIB [Suspect]
     Dosage: LAST DOSE PRIOR TO SAE: 17/OCT/2011
     Route: 048
     Dates: start: 20111017
  2. NOVALGIN [Concomitant]
     Dosage: 90 DROPS DAILY
     Dates: start: 20110725
  3. VEMURAFENIB [Suspect]
     Indication: METASTATIC MALIGNANT MELANOMA
     Dosage: LAST DOSE PRIOR TO SAE: 17/OCT/2011
     Route: 048
     Dates: start: 20110919
  4. TRAMAL LONG [Concomitant]
     Dosage: UNKNOWN
     Dates: start: 20110725
  5. TRAMADOL HCL [Concomitant]
     Dosage: 75 DROPS DAILY
     Dates: start: 20110725

REACTIONS (1)
  - MALIGNANT MELANOMA [None]
